FAERS Safety Report 14579525 (Version 3)
Quarter: 2018Q1

REPORT INFORMATION
  Report Type: Spontaneous
  Country: US (occurrence: VE)
  Receive Date: 20180227
  Receipt Date: 20180316
  Transmission Date: 20180509
  Serious: Yes (Other)
  Sender: FDA-Public Use
  Company Number: US-SUNOVION-2018SUN000743

PATIENT
  Sex: Female
  Weight: 75 kg

DRUGS (3)
  1. SALBUTAMOL [Concomitant]
     Active Substance: ALBUTEROL
  2. INDACATEROL [Suspect]
     Active Substance: INDACATEROL
     Indication: ASTHMA
     Dosage: ONBREZ BREEZHALER (INDACATEROL) DRY POWDER INHALER (150 MG); 300 MG QD
     Route: 055
     Dates: start: 20140101, end: 201701
  3. CANDESARTAN. [Suspect]
     Active Substance: CANDESARTAN
     Indication: HYPERTENSION
     Dosage: UNK, QD
     Route: 065

REACTIONS (8)
  - Fear [Unknown]
  - General physical health deterioration [Unknown]
  - Product use in unapproved indication [Unknown]
  - Lung infection [Unknown]
  - Allergy to chemicals [Unknown]
  - Feeling of despair [Unknown]
  - Hypersensitivity [Unknown]
  - Heart rate abnormal [Unknown]
